FAERS Safety Report 11713890 (Version 6)
Quarter: 2016Q3

REPORT INFORMATION
  Report Type: Spontaneous
  Country: US (occurrence: US)
  Receive Date: 20151109
  Receipt Date: 20160923
  Transmission Date: 20161109
  Serious: Yes (Congenital Anomaly, Other)
  Sender: FDA-Public Use
  Company Number: PHEH2015US022968

PATIENT
  Sex: Male

DRUGS (3)
  1. ONDANSETRON HYDROCHLORIDE. [Suspect]
     Active Substance: ONDANSETRON HYDROCHLORIDE
     Indication: FOETAL EXPOSURE DURING PREGNANCY
     Route: 064
  2. ZOFRAN [Suspect]
     Active Substance: ONDANSETRON HYDROCHLORIDE
     Indication: FOETAL EXPOSURE DURING PREGNANCY
     Dosage: MOTHER DOSE: AS NEEDED (PRN)
     Route: 064
  3. ONDANSETRON HYDROCHLORIDE. [Suspect]
     Active Substance: ONDANSETRON HYDROCHLORIDE
     Indication: FOETAL EXPOSURE DURING PREGNANCY
     Route: 064

REACTIONS (33)
  - Hydronephrosis [Unknown]
  - Cutaneous symptom [Unknown]
  - Dermatitis atopic [Unknown]
  - Nasal congestion [Unknown]
  - Congenital hypothyroidism [Unknown]
  - Foetal exposure during pregnancy [Unknown]
  - Scar [Unknown]
  - Anxiety [Unknown]
  - Multiple congenital abnormalities [Unknown]
  - Otitis media chronic [Unknown]
  - Pain [Unknown]
  - Injury [Unknown]
  - Gastrointestinal disorder [Unknown]
  - Heart disease congenital [Unknown]
  - Galactosaemia [Unknown]
  - Deafness [Unknown]
  - Anhedonia [Unknown]
  - Dry skin [Unknown]
  - Congenital anomaly [Unknown]
  - Pyelocaliectasis [Unknown]
  - Effusion [Unknown]
  - Snoring [Unknown]
  - Seborrhoea [Unknown]
  - Skin hypopigmentation [Unknown]
  - Renal disorder [Unknown]
  - Gastrooesophageal reflux disease [Unknown]
  - Cough [Unknown]
  - Cleft palate [Unknown]
  - Spine malformation [Unknown]
  - Eustachian tube dysfunction [Unknown]
  - Cystic fibrosis [Unknown]
  - Hyperadrenalism [Unknown]
  - Eating disorder [Unknown]
